FAERS Safety Report 12118672 (Version 1)
Quarter: 2016Q1

REPORT INFORMATION
  Report Type: Spontaneous
  Country: US (occurrence: None)
  Receive Date: 20160225
  Receipt Date: 20160225
  Transmission Date: 20160526
  Serious: Yes (Hospitalization)
  Sender: FDA-Public Use
  Company Number: None

PATIENT
  Age: 35 Year
  Sex: Male
  Weight: 58.51 kg

DRUGS (2)
  1. DIVALPROEX [Suspect]
     Active Substance: DIVALPROEX SODIUM
     Indication: EPILEPSY
     Dosage: 500MG 2 PILLS ONCE AT BEDTIME BY MOUTH
     Route: 048
     Dates: start: 20080617
  2. PHENYTOIN (DILANTIN) ER [Suspect]
     Active Substance: PHENYTOIN
     Dosage: 50MG 7 PILLS ONCE AT BEDTIME BY MOUTH
     Route: 048

REACTIONS (4)
  - Irritability [None]
  - Restlessness [None]
  - Insomnia [None]
  - Balance disorder [None]

NARRATIVE: CASE EVENT DATE: 20150217
